FAERS Safety Report 14972788 (Version 1)
Quarter: 2018Q2

REPORT INFORMATION
  Report Type: Spontaneous
  Country: US (occurrence: US)
  Receive Date: 20180514
  Receipt Date: 20180514
  Transmission Date: 20180711
  Serious: Yes (Death)
  Sender: FDA-Public Use
  Company Number: None

PATIENT
  Age: 71 Year
  Sex: Female

DRUGS (1)
  1. TACROLIMUS 0.5MG [Suspect]
     Active Substance: TACROLIMUS
     Route: 048
     Dates: start: 20160112, end: 20180512

REACTIONS (1)
  - Death [None]
